FAERS Safety Report 9703395 (Version 2)
Quarter: 2013Q4

REPORT INFORMATION
  Report Type: Report from Study
  Country: US (occurrence: US)
  Receive Date: 20131122
  Receipt Date: 20131122
  Transmission Date: 20140711
  Serious: Yes (Death, Hospitalization)
  Sender: FDA-Public Use
  Company Number: PHEH2013US018338

PATIENT
  Sex: Female

DRUGS (2)
  1. AFINITOR [Suspect]
     Indication: BREAST CANCER
     Dosage: 10 MG, DAILY
     Route: 048
     Dates: start: 20130617
  2. EXEMESTANE [Concomitant]
     Indication: BREAST CANCER

REACTIONS (4)
  - Myocardial infarction [Fatal]
  - Renal failure acute [Unknown]
  - Urinary tract infection [Unknown]
  - Dehydration [Unknown]
